FAERS Safety Report 8395814-X (Version None)
Quarter: 2012Q2

REPORT INFORMATION
  Report Type: 
  Country: None (occurrence: None)
  Receive Date: 20120529
  Receipt Date: 20120529
  Transmission Date: 20120825
  Serious: Yes (Hospitalization, Other)
  Sender: FDA-Public Use
  Company Number: None

PATIENT
  Age: 51 Year
  Sex: Male
  Weight: 120.2032 kg

DRUGS (2)
  1. NOVANTRONE [Suspect]
     Indication: MULTIPLE SCLEROSIS
     Dosage: IV 90 DAYS INTRA-ARTERIAL
     Route: 042
     Dates: start: 20090424, end: 20111212
  2. NOVANTRONE [Suspect]
     Indication: ADJUVANT THERAPY
     Dosage: IV 90 DAYS INTRA-ARTERIAL
     Route: 042
     Dates: start: 20090424, end: 20111212

REACTIONS (5)
  - ELECTROENCEPHALOGRAM ABNORMAL [None]
  - HEAD INJURY [None]
  - SYNCOPE [None]
  - GASTROINTESTINAL DISORDER [None]
  - CEREBRAL HAEMANGIOMA [None]
